FAERS Safety Report 16234329 (Version 1)
Quarter: 2019Q2

REPORT INFORMATION
  Report Type: Spontaneous
  Country: US (occurrence: US)
  Receive Date: 20190319
  Receipt Date: 20190319
  Transmission Date: 20190711
  Serious: No
  Sender: FDA-Public Use
  Company Number: None

PATIENT
  Sex: Female
  Weight: 81.65 kg

DRUGS (12)
  1. HCTZ [Concomitant]
     Active Substance: HYDROCHLOROTHIAZIDE
  2. CENTRUM [Concomitant]
     Active Substance: VITAMINS
  3. BIOTIN [Concomitant]
     Active Substance: BIOTIN
  4. PRILOSEC [Concomitant]
     Active Substance: OMEPRAZOLE MAGNESIUM
  5. LIPITOR [Concomitant]
     Active Substance: ATORVASTATIN CALCIUM
  6. VIT D [Concomitant]
     Active Substance: VITAMIN D NOS
  7. BIPAP-MYRBETRIQ [Concomitant]
  8. LOPRESSOR [Concomitant]
     Active Substance: METOPROLOL TARTRATE
  9. LOSARTAN. [Concomitant]
     Active Substance: LOSARTAN
  10. CITRAVITE [Concomitant]
  11. PROLIA [Suspect]
     Active Substance: DENOSUMAB
     Indication: OSTEOPOROSIS
     Dosage: ?          QUANTITY:1 DF DOSAGE FORM;OTHER FREQUENCY:Q 6 MONTH;?
     Route: 058
     Dates: start: 20190215
  12. CELEXA [Concomitant]
     Active Substance: CITALOPRAM HYDROBROMIDE

REACTIONS (2)
  - Myalgia [None]
  - Movement disorder [None]
